FAERS Safety Report 6316534-9 (Version None)
Quarter: 2009Q3

REPORT INFORMATION
  Report Type: 
  Country: None (occurrence: None)
  Receive Date: 20090820
  Receipt Date: 20090813
  Transmission Date: 20100115
  Serious: Yes (Hospitalization)
  Sender: FDA-Public Use
  Company Number: FR-GENENTECH-283733

PATIENT
  Sex: Female

DRUGS (3)
  1. MABTHERA [Suspect]
     Indication: LYMPHOMA
     Dosage: 500 MG, UNK
     Route: 042
     Dates: start: 20080721, end: 20090101
  2. MABTHERA [Suspect]
     Dosage: UNK
     Dates: start: 20090101, end: 20090512
  3. ANTHRACYCLINE [Suspect]
     Indication: DRUG USE FOR UNKNOWN INDICATION

REACTIONS (3)
  - ACUTE PULMONARY OEDEMA [None]
  - CARDIAC FAILURE [None]
  - DRUG INTERACTION [None]
